FAERS Safety Report 9602942 (Version 3)
Quarter: 2013Q4

REPORT INFORMATION
  Report Type: Spontaneous
  Country: US (occurrence: US)
  Receive Date: 20131007
  Receipt Date: 20131028
  Transmission Date: 20140711
  Serious: Yes (Life-Threatening, Hospitalization)
  Sender: FDA-Public Use
  Company Number: US-JNJFOC-20131003473

PATIENT
  Sex: Male
  Weight: 67.13 kg

DRUGS (3)
  1. XARELTO [Suspect]
     Indication: PULMONARY EMBOLISM
     Route: 048
  2. FINASTERIDE [Concomitant]
     Route: 065
  3. AMLONG [Concomitant]
     Route: 065

REACTIONS (2)
  - Splenic haemorrhage [Unknown]
  - Babesiosis [Unknown]
